FAERS Safety Report 21295537 (Version 2)
Quarter: 2023Q4

REPORT INFORMATION
  Report Type: Other
  Country: JP (occurrence: JP)
  Receive Date: 20220905
  Receipt Date: 20231122
  Transmission Date: 20240109
  Serious: Yes (Hospitalization)
  Sender: FDA-Public Use
  Company Number: JP-CHUGAI-2021005468AA

PATIENT
  Age: 74 Year
  Sex: Female
  Weight: 49.7 kg

DRUGS (8)
  1. TECENTRIQ [Suspect]
     Active Substance: ATEZOLIZUMAB
     Indication: Small cell lung cancer extensive stage
     Route: 041
     Dates: start: 20210119, end: 20210119
  2. TECENTRIQ [Suspect]
     Active Substance: ATEZOLIZUMAB
     Route: 041
     Dates: start: 20210216, end: 20210622
  3. CARBOPLATIN [Concomitant]
     Active Substance: CARBOPLATIN
     Indication: Small cell lung cancer extensive stage
     Route: 041
     Dates: start: 20210119, end: 20210119
  4. CARBOPLATIN [Concomitant]
     Active Substance: CARBOPLATIN
     Route: 041
     Dates: start: 20210216
  5. CARBOPLATIN [Concomitant]
     Active Substance: CARBOPLATIN
     Dosage: 449 MILLIGRAM, ONCE/3WEEKS
     Route: 041
     Dates: end: 20210330
  6. ETOPOSIDE [Concomitant]
     Active Substance: ETOPOSIDE
     Indication: Small cell lung cancer extensive stage
     Route: 041
     Dates: start: 20210119, end: 20210119
  7. ETOPOSIDE [Concomitant]
     Active Substance: ETOPOSIDE
     Route: 041
     Dates: start: 20210216
  8. ETOPOSIDE [Concomitant]
     Active Substance: ETOPOSIDE
     Route: 041
     Dates: end: 20210330

REACTIONS (2)
  - White blood cell count decreased [Recovered/Resolved]
  - Encephalitis [Not Recovered/Not Resolved]

NARRATIVE: CASE EVENT DATE: 20210128
